FAERS Safety Report 15143232 (Version 3)
Quarter: 2019Q1

REPORT INFORMATION
  Report Type: Spontaneous
  Country: US (occurrence: US)
  Receive Date: 20180713
  Receipt Date: 20190214
  Transmission Date: 20190417
  Serious: Yes (Life-Threatening, Hospitalization, Other)
  Sender: FDA-Public Use
  Company Number: US-GLAXOSMITHKLINE-US2018124209

PATIENT
  Age: 35 Year
  Sex: Female

DRUGS (3)
  1. LAMICTAL [Suspect]
     Active Substance: LAMOTRIGINE
     Indication: BIPOLAR DISORDER
     Dosage: 150 MG, UNK
     Route: 065
  2. TOPAMAX [Concomitant]
     Active Substance: TOPIRAMATE
     Dosage: UNK
     Route: 065
  3. LAMICTAL [Suspect]
     Active Substance: LAMOTRIGINE
     Dosage: 100 MG, UNK
     Route: 065

REACTIONS (7)
  - Aspartate aminotransferase increased [Unknown]
  - Ventricular fibrillation [Recovered/Resolved]
  - Ventricular extrasystoles [Unknown]
  - Torsade de pointes [Recovered/Resolved]
  - Alanine aminotransferase increased [Unknown]
  - Blood lactic acid increased [Unknown]
  - Cardiac arrest [Recovered/Resolved]
